FAERS Safety Report 16162873 (Version 4)
Quarter: 2019Q2

REPORT INFORMATION
  Report Type: Spontaneous
  Country: PL (occurrence: PL)
  Receive Date: 20190405
  Receipt Date: 20190508
  Transmission Date: 20190711
  Serious: Yes (Death, Hospitalization)
  Sender: FDA-Public Use
  Company Number: PL-ACTELION-A-CH2019-188423

PATIENT
  Age: 27 Year
  Sex: Male
  Weight: 75 kg

DRUGS (15)
  1. OPSUMIT [Suspect]
     Active Substance: MACITENTAN
     Indication: PULMONARY ARTERIAL HYPERTENSION
     Dosage: 10 MG, OD
     Route: 048
     Dates: start: 20130228, end: 20190324
  2. FUROSEMIDE. [Concomitant]
     Active Substance: FUROSEMIDE
     Indication: HEART DISEASE CONGENITAL
     Dosage: 20 MG, TID
     Route: 042
     Dates: start: 201810
  3. FUROSEMIDE. [Concomitant]
     Active Substance: FUROSEMIDE
     Dosage: UNK
     Route: 042
     Dates: end: 20190324
  4. SPIRONOL [Concomitant]
     Active Substance: SPIRONOLACTONE
     Indication: HEART DISEASE CONGENITAL
     Dosage: 50 MG, QD
     Route: 042
     Dates: start: 201710
  5. TIETYLPERAZINE MALEATE [Concomitant]
     Dosage: 6.5 MG
     Dates: start: 201810
  6. VELETRI [Suspect]
     Active Substance: EPOPROSTENOL
     Indication: PULMONARY ARTERIAL HYPERTENSION
     Dosage: 56 NG/KG, PER MIN
     Route: 042
     Dates: start: 201612, end: 20190324
  7. MIRTAZAPINUM [Concomitant]
     Active Substance: MIRTAZAPINE
     Dosage: 45 MG
     Dates: start: 201810
  8. REMODULIN [Concomitant]
     Active Substance: TREPROSTINIL
     Indication: PULMONARY ARTERIAL HYPERTENSION
     Dosage: 60 NG/KG, PER MIN
     Dates: start: 2016
  9. TORASEMIDE [Concomitant]
     Active Substance: TORSEMIDE
     Indication: HEART DISEASE CONGENITAL
     Dosage: 100 MG, QD
     Route: 048
     Dates: start: 201710
  10. IVABRADINE [Concomitant]
     Active Substance: IVABRADINE
     Dosage: 7.5 MG, BID
     Route: 048
     Dates: start: 201710
  11. ALLOPURINOL. [Concomitant]
     Active Substance: ALLOPURINOL
     Dosage: 300 MG
     Route: 048
     Dates: start: 2015
  12. BOSENTAN. [Suspect]
     Active Substance: BOSENTAN
     Indication: PULMONARY ARTERIAL HYPERTENSION
     Dosage: UNK
     Route: 048
     Dates: start: 2013
  13. SILDENAFIL. [Suspect]
     Active Substance: SILDENAFIL
     Indication: PULMONARY ARTERIAL HYPERTENSION
     Dosage: 20 MG, TID
     Route: 048
     Dates: start: 2013, end: 20190324
  14. ALDACTONE [Concomitant]
     Active Substance: SPIRONOLACTONE
     Dosage: 50 MG
     Route: 042
     Dates: start: 201810
  15. HYGROTON [Concomitant]
     Active Substance: CHLORTHALIDONE
     Indication: HEART DISEASE CONGENITAL
     Dosage: 50 MG, QD
     Route: 048
     Dates: start: 201810

REACTIONS (19)
  - Concomitant disease aggravated [Fatal]
  - Weight increased [Fatal]
  - Right ventricular failure [Fatal]
  - Cyanosis [Fatal]
  - Cyanosis central [Fatal]
  - Pyrexia [Fatal]
  - Cardiac failure chronic [Fatal]
  - Exercise tolerance decreased [Fatal]
  - Dyspnoea [Fatal]
  - Respiratory arrest [Fatal]
  - Abdominal distension [Fatal]
  - Tachypnoea [Fatal]
  - Pneumonia [Fatal]
  - Hypokalaemia [Unknown]
  - Oxygen saturation decreased [Fatal]
  - Pulmonary oedema [Fatal]
  - Haemoptysis [Unknown]
  - Pulseless electrical activity [Fatal]
  - Sinus tachycardia [Fatal]

NARRATIVE: CASE EVENT DATE: 201803
